FAERS Safety Report 4949468-2 (Version None)
Quarter: 2006Q1

REPORT INFORMATION
  Report Type: 
  Country: None (occurrence: None)
  Receive Date: 20060315
  Receipt Date: 20060221
  Transmission Date: 20060701
  Serious: Yes (Hospitalization)
  Sender: FDA-Public Use
  Company Number: US200602004321

PATIENT
  Age: 59 Year
  Sex: Female

DRUGS (3)
  1. CYMBALTA [Suspect]
     Dosage: 120 MG, DIALY (1/D); 60 MG, DAILY (1/D)
  2. ZYVOX [Concomitant]
  3. FLERERIL (CYCLOBENZAPRINE HYDROCHLORIDE) [Concomitant]

REACTIONS (4)
  - NAUSEA [None]
  - PHARMACEUTICAL PRODUCT COMPLAINT [None]
  - POST PROCEDURAL COMPLICATION [None]
  - THERAPEUTIC PROCEDURE [None]
